FAERS Safety Report 6083394-3 (Version None)
Quarter: 2009Q1

REPORT INFORMATION
  Report Type: 
  Country: None (occurrence: None)
  Receive Date: 20090219
  Receipt Date: 20090119
  Transmission Date: 20090719
  Serious: No
  Sender: FDA-Public Use
  Company Number: US-BAYER-200910208BCC

PATIENT
  Age: 74 Year
  Sex: Female
  Weight: 72 kg

DRUGS (2)
  1. ALEVE (CAPLET) [Suspect]
     Indication: ARTHRITIS
     Dosage: TOTAL DAILY DOSE: 220 MG  UNIT DOSE: 220 MG
     Dates: start: 20070101
  2. ATENOLOL [Concomitant]

REACTIONS (1)
  - BLOOD PRESSURE INCREASED [None]
